FAERS Safety Report 6603197-8 (Version None)
Quarter: 2010Q1

REPORT INFORMATION
  Report Type: 
  Country: None (occurrence: None)
  Receive Date: 20100226
  Receipt Date: 20100218
  Transmission Date: 20100710
  Serious: Yes (Death)
  Sender: FDA-Public Use
  Company Number: US-PFIZER INC-2010021571

PATIENT

DRUGS (3)
  1. NORVASC [Suspect]
  2. ZOLOFT [Suspect]
  3. CELEBREX [Suspect]

REACTIONS (1)
  - DEATH [None]
